FAERS Safety Report 7290337-3 (Version None)
Quarter: 2011Q1

REPORT INFORMATION
  Report Type: 
  Country: None (occurrence: None)
  Receive Date: 20110214
  Receipt Date: 20110131
  Transmission Date: 20110831
  Serious: Yes (Death)
  Sender: FDA-Public Use
  Company Number: JP-BAYER-200911515BYL

PATIENT
  Age: 82 Year
  Sex: Male

DRUGS (19)
  1. ASPIRIN [Suspect]
     Indication: HYPERTENSION
     Dosage: 100 MG (DAILY DOSE), ONCE, ORAL
     Route: 048
     Dates: start: 20090413, end: 20090427
  2. MUCOSOLVAN [Concomitant]
     Indication: SPUTUM RETENTION
     Dosage: DAILY DOSE 45 MG
     Route: 048
     Dates: start: 20090413, end: 20090427
  3. CARDENALIN [Concomitant]
     Indication: HYPERTENSION
     Dosage: DAILY DOSE 1 MG
     Route: 048
     Dates: start: 20090413, end: 20090427
  4. LASIX [Concomitant]
     Dosage: 20 MG (DAILY DOSE), , INTRAVENOUS
     Route: 042
     Dates: start: 20090424, end: 20090424
  5. ITOROL [Concomitant]
     Indication: ANGINA PECTORIS
     Dosage: DAILY DOSE 40 MG
     Route: 048
     Dates: start: 20090413, end: 20090427
  6. MAGLAX [Concomitant]
     Indication: GASTRITIS PROPHYLAXIS
     Dosage: DAILY DOSE 330 MG
     Route: 048
     Dates: start: 20090413, end: 20090427
  7. GASTER D [Concomitant]
     Indication: GASTRITIS PROPHYLAXIS
     Dosage: 40 MG, QD
     Route: 048
     Dates: start: 20090414, end: 20090427
  8. LASIX [Concomitant]
     Indication: POLYURIA
     Dosage: 20 MG, QD
     Route: 048
     Dates: start: 20090413, end: 20090427
  9. MUCOSOLVAN [Concomitant]
  10. MAGLAX [Concomitant]
  11. CARDENALIN [Concomitant]
  12. ALOSITOL [Concomitant]
  13. ITOROL [Concomitant]
  14. SELBEX [Concomitant]
     Indication: GASTRITIS
     Dosage: 1.5 G, QD
     Route: 048
     Dates: start: 20090413, end: 20090427
  15. SELBEX [Concomitant]
  16. NEXAVAR [Suspect]
     Indication: RENAL CELL CARCINOMA
     Route: 048
     Dates: start: 20090416, end: 20090425
  17. LASIX [Concomitant]
     Route: 042
     Dates: start: 20090427, end: 20090427
  18. ALOSITOL [Concomitant]
     Indication: HYPERURICAEMIA
     Dosage: DAILY DOSE 100 MG
     Route: 048
     Dates: start: 20090413, end: 20090427
  19. GASTER D [Concomitant]

REACTIONS (3)
  - MELAENA [None]
  - RECTAL ULCER HAEMORRHAGE [None]
  - SHOCK HAEMORRHAGIC [None]
